FAERS Safety Report 6635860-7 (Version None)
Quarter: 2010Q1

REPORT INFORMATION
  Report Type: 
  Country: None (occurrence: None)
  Receive Date: 20100316
  Receipt Date: 20100305
  Transmission Date: 20100710
  Serious: Yes (Hospitalization)
  Sender: FDA-Public Use
  Company Number: DK-JNJFOC-20100104037

PATIENT
  Sex: Male
  Weight: 95.03 kg

DRUGS (4)
  1. REMICADE [Suspect]
     Indication: DRUG USE FOR UNKNOWN INDICATION
     Route: 042
  2. REMICADE [Suspect]
     Dosage: 2ND DOSE
     Route: 042
  3. REMICADE [Suspect]
     Dosage: 3 INFUSIONS ON UNSPECIFIED DATES IN 2007
     Route: 042
  4. BLINDED STUDY MEDICATION [Suspect]
     Indication: COLITIS ULCERATIVE
     Route: 048

REACTIONS (3)
  - CHEST PAIN [None]
  - DRUG INEFFECTIVE [None]
  - HYPERSENSITIVITY [None]
